FAERS Safety Report 18918746 (Version 1)
Quarter: 2021Q1

REPORT INFORMATION
  Report Type: Spontaneous
  Country: CA (occurrence: CA)
  Receive Date: 20210220
  Receipt Date: 20210220
  Transmission Date: 20210420
  Serious: Yes (Other)
  Sender: FDA-Public Use
  Company Number: CA-AUROBINDO-AUR-APL-2021-006259

PATIENT
  Age: 68 Year
  Sex: Male
  Weight: 85 kg

DRUGS (2)
  1. REMICADE [Suspect]
     Active Substance: INFLIXIMAB
     Indication: CROHN^S DISEASE
     Dosage: 500 MILLIGRAM (1 EVERY 5 WEEKS)
     Route: 042
  2. CEPHALEXIN. [Suspect]
     Active Substance: CEPHALEXIN
     Indication: WOUND INFECTION
     Dosage: UNK
     Route: 065

REACTIONS (4)
  - Wound infection [Unknown]
  - Intestinal haemorrhage [Unknown]
  - Skin laceration [Unknown]
  - Road traffic accident [Unknown]
